FAERS Safety Report 7997522-3 (Version None)
Quarter: 2011Q4

REPORT INFORMATION
  Report Type: 
  Country: None (occurrence: None)
  Receive Date: 20111221
  Receipt Date: 20111214
  Transmission Date: 20120403
  Serious: No
  Sender: FDA-Public Use
  Company Number: US-B.I. PHARMACEUTICALS,INC./RIDGEFIELD-2011-BP-28131BP

PATIENT
  Sex: Male

DRUGS (14)
  1. SYMBICORT [Concomitant]
     Indication: CHRONIC OBSTRUCTIVE PULMONARY DISEASE
     Dosage: 2 PUF
     Route: 055
     Dates: start: 20111201
  2. FEXOFENADINE [Concomitant]
     Indication: HYPERSENSITIVITY
     Dosage: 180 MG
     Route: 048
     Dates: start: 20010101
  3. TOVIAZER ER [Concomitant]
     Indication: PROSTATIC DISORDER
     Dosage: 8 MG
     Route: 048
     Dates: start: 20110401
  4. VITAMIN D [Concomitant]
     Indication: SUPPLEMENTATION THERAPY
     Dosage: 1000 U
     Route: 048
     Dates: start: 20080101
  5. MUCINEX DM [Concomitant]
     Indication: RESPIRATORY TRACT CONGESTION
     Dosage: 1200 MG
     Route: 048
     Dates: start: 20100101
  6. FOLIC ACID [Concomitant]
     Indication: SUPPLEMENTATION THERAPY
     Dosage: 400 MG
     Route: 048
     Dates: start: 20080101
  7. SELENIUM [Concomitant]
     Indication: SUPPLEMENTATION THERAPY
     Dosage: 100 MCG
     Route: 048
     Dates: start: 20080101
  8. SINGULAIR [Concomitant]
     Indication: HYPERSENSITIVITY
     Dosage: 10 MG
     Route: 048
     Dates: start: 20040101
  9. INDAPAMIDE [Concomitant]
     Indication: URINARY RETENTION
     Dosage: 2.5 MG
     Route: 048
     Dates: start: 19960101
  10. SPIRIVA [Suspect]
     Indication: CHRONIC OBSTRUCTIVE PULMONARY DISEASE
     Dosage: 18 MCG
     Route: 055
     Dates: start: 20050101
  11. BENICAR [Concomitant]
     Indication: BLOOD PRESSURE
     Dosage: 20 MG
     Route: 048
     Dates: start: 20050101
  12. BENICAR [Concomitant]
     Dosage: 40 MG
     Route: 048
     Dates: start: 20050101
  13. ASPIRIN [Concomitant]
     Indication: PROPHYLAXIS
     Dosage: 81 MG
     Route: 048
     Dates: start: 20040101
  14. VITAMIN B-12 [Concomitant]
     Indication: SUPPLEMENTATION THERAPY
     Dosage: 500 MG
     Route: 048
     Dates: start: 20080101

REACTIONS (1)
  - PROSTATOMEGALY [None]
